FAERS Safety Report 20161835 (Version 2)
Quarter: 2021Q4

REPORT INFORMATION
  Report Type: Spontaneous
  Country: US (occurrence: US)
  Receive Date: 20211208
  Receipt Date: 20211220
  Transmission Date: 20220303
  Serious: Yes (Other)
  Sender: FDA-Public Use
  Company Number: US-BAYER-2021A262285

PATIENT
  Age: 28 Year
  Sex: Female

DRUGS (1)
  1. MIRENA [Suspect]
     Active Substance: LEVONORGESTREL
     Indication: Contraception
     Dosage: 20?G/DAY
     Route: 015
     Dates: start: 20211122, end: 20211122

REACTIONS (3)
  - Uterine perforation [Unknown]
  - Uterine cervix stenosis [Unknown]
  - Unintentional medical device removal [None]

NARRATIVE: CASE EVENT DATE: 20211122
